FAERS Safety Report 8552240-8 (Version None)
Quarter: 2012Q3

REPORT INFORMATION
  Report Type: 
  Country: None (occurrence: None)
  Receive Date: 20120731
  Receipt Date: 20120123
  Transmission Date: 20120928
  Serious: Yes (Other)
  Sender: FDA-Public Use
  Company Number: US-JNJCP-30000087731

PATIENT
  Age: 56 Year
  Sex: Female
  Weight: 73 kg

DRUGS (6)
  1. NTG AGE REST ANTI OXIDANT NIGHT USA NTARANUS [Suspect]
     Dosage: TWO TIMES
     Route: 061
  2. AMBIEN [Concomitant]
     Indication: INSOMNIA
     Dosage: 10MG SINCE DEC-2011
  3. ESTRADIOL [Concomitant]
     Indication: HORMONE REPLACEMENT THERAPY
     Dosage: 2MG SINCE FOUR-FIVE YEARS
  4. HCTZ AND LISINOPRIL COMBINATION [Concomitant]
     Indication: HYPERTENSION
     Dosage: SINCE FOUR TO FIVE YEARS
  5. NTG AGE REST ANTI OXIDANT MOISTURE SPF20 USA NTARAMUS [Suspect]
     Dosage: TWO TIMES
     Route: 061
     Dates: end: 20120115
  6. BUSPIRONE HCL [Concomitant]
     Dosage: 10 MILLIGRAM SINCE 18-JAN-2012

REACTIONS (8)
  - APPLICATION SITE DRYNESS [None]
  - EYE SWELLING [None]
  - HEADACHE [None]
  - APPLICATION SITE DERMATITIS [None]
  - HOT FLUSH [None]
  - CHEST DISCOMFORT [None]
  - PRURITUS [None]
  - DYSPNOEA [None]
